FAERS Safety Report 6052728-8 (Version None)
Quarter: 2009Q1

REPORT INFORMATION
  Report Type: 
  Country: None (occurrence: None)
  Receive Date: 20090127
  Receipt Date: 20090121
  Transmission Date: 20090719
  Serious: Yes (Other)
  Sender: FDA-Public Use
  Company Number: AR-BRISTOL-MYERS SQUIBB COMPANY-14479661

PATIENT
  Age: 49 Year
  Sex: Female

DRUGS (2)
  1. CORGARD [Suspect]
     Indication: ARRHYTHMIA
  2. AMIODARONE HCL [Concomitant]

REACTIONS (1)
  - ACTIVITIES OF DAILY LIVING IMPAIRED [None]
